FAERS Safety Report 5861371-2 (Version None)
Quarter: 2008Q3

REPORT INFORMATION
  Report Type: 
  Country: None (occurrence: None)
  Receive Date: 20080827
  Receipt Date: 20080430
  Transmission Date: 20090109
  Serious: No
  Sender: FDA-Public Use
  Company Number: US-ABBOTT-08P-163-0449611-00

PATIENT
  Sex: Male

DRUGS (4)
  1. NIASPAN [Suspect]
     Indication: HIGH DENSITY LIPOPROTEIN INCREASED
     Dosage: 500 MG AT BED TIME
     Route: 048
     Dates: start: 20080301
  2. NIASPAN [Suspect]
     Indication: BLOOD TRIGLYCERIDES INCREASED
  3. VALIUM [Concomitant]
     Indication: PREMEDICATION
     Dates: start: 20080429, end: 20080429
  4. ACETAMINOPHEN [Concomitant]
     Indication: DENTAL DISCOMFORT

REACTIONS (5)
  - DENTAL DISCOMFORT [None]
  - ERYTHEMA [None]
  - PAIN [None]
  - PRURITUS [None]
  - SKIN WARM [None]
